FAERS Safety Report 9920307 (Version 2)
Quarter: 2014Q1

REPORT INFORMATION
  Report Type: Report from Study
  Country: US (occurrence: US)
  Receive Date: 20140224
  Receipt Date: 20140304
  Transmission Date: 20141002
  Serious: No
  Sender: FDA-Public Use
  Company Number: PHEH2014US003544

PATIENT
  Age: 75 Year
  Sex: Female

DRUGS (8)
  1. TOBI [Suspect]
     Indication: BRONCHIECTASIS
     Dosage: 300 MG, QD
     Route: 055
     Dates: start: 20120703, end: 20120803
  2. TOBI [Suspect]
     Indication: PSEUDOMONAS INFECTION
     Dosage: 300 MG, QD
     Dates: start: 20121112, end: 20130901
  3. TOBI [Suspect]
     Dosage: 300 MG, QD
     Dates: start: 201312
  4. SINGULAIR [Concomitant]
     Dosage: UNK
  5. SUCRALOSE [Concomitant]
     Dosage: UNK
  6. PERFOROMIST [Concomitant]
     Dosage: UNK
  7. SIMVASTIN [Concomitant]
     Dosage: UNK
  8. LOSARTAN [Concomitant]
     Dosage: UNK

REACTIONS (4)
  - Renal disorder [Recovering/Resolving]
  - Blood creatinine increased [Not Recovered/Not Resolved]
  - Weight decreased [Unknown]
  - Headache [Unknown]
